FAERS Safety Report 4804526-8 (Version None)
Quarter: 2005Q4

REPORT INFORMATION
  Report Type: 
  Country: None (occurrence: None)
  Receive Date: 20051017
  Receipt Date: 20051010
  Transmission Date: 20060501
  Serious: Yes (Hospitalization, Other)
  Sender: FDA-Public Use
  Company Number: HQWYE947610OCT05

PATIENT
  Age: 62 Year
  Sex: Female

DRUGS (7)
  1. EFFEXOR [Suspect]
     Indication: DEPRESSION
     Dosage: ^38 MG^ DAILY, ORAL
     Route: 048
     Dates: start: 20040722, end: 20040726
  2. CHLORTHALIDONE [Suspect]
     Indication: POLYURIA
     Dosage: 25 MG 1X PER 1 DAY, ORAL
     Route: 048
     Dates: end: 20040726
  3. ATENOLOL [Concomitant]
  4. ZOPICLONE (ZOPLICONE) [Concomitant]
  5. SLOW-K [Concomitant]
  6. XALANTAN (LANTANOPROST) [Concomitant]
  7. DIAZEPAM [Concomitant]

REACTIONS (3)
  - BRAIN OEDEMA [None]
  - DEPRESSED LEVEL OF CONSCIOUSNESS [None]
  - HYPONATRAEMIA [None]
